FAERS Safety Report 10900042 (Version 1)
Quarter: 2015Q1

REPORT INFORMATION
  Report Type: Spontaneous
  Country: US (occurrence: US)
  Receive Date: 20150310
  Receipt Date: 20150310
  Transmission Date: 20150721
  Serious: No
  Sender: FDA-Public Use
  Company Number: US-TEVA-532578USA

PATIENT
  Age: 55 Year
  Sex: Male

DRUGS (1)
  1. CAPECITABINE. [Suspect]
     Active Substance: CAPECITABINE
     Indication: CHOLANGIOCARCINOMA
     Dosage: 5000 MILLIGRAM DAILY; 1WEEK, THEN 1 WEEK OFF, 4 WEEK CYCLE
     Route: 048

REACTIONS (2)
  - Drug dose omission [Unknown]
  - Paraesthesia [Unknown]
